FAERS Safety Report 20278781 (Version 1)
Quarter: 2022Q1

REPORT INFORMATION
  Report Type: Spontaneous
  Country: DE (occurrence: DE)
  Receive Date: 20220103
  Receipt Date: 20220103
  Transmission Date: 20220423
  Serious: Yes (Congenital Anomaly)
  Sender: FDA-Public Use
  Company Number: DE-EMBRYOTOX-202012231

PATIENT
  Age: 1 Day
  Sex: Female
  Weight: 1.91 kg

DRUGS (6)
  1. BETAMETHASONE [Suspect]
     Active Substance: BETAMETHASONE
     Dosage: 12 [MG/D ]
     Route: 064
     Dates: start: 20210502, end: 20210503
  2. FLUTICASONE FUROATE\VILANTEROL TRIFENATATE [Suspect]
     Active Substance: FLUTICASONE FUROATE\VILANTEROL TRIFENATATE
     Dosage: 92 [?G/D ] / 22 [?G/D ]
     Route: 064
  3. ALBUTEROL [Concomitant]
     Active Substance: ALBUTEROL
     Dosage: IF REQUIRED
     Route: 064
     Dates: start: 20200918, end: 20201215
  4. NIFEDIPINE [Concomitant]
     Active Substance: NIFEDIPINE
     Route: 064
     Dates: start: 20210504, end: 20210509
  5. ATOSIBAN [Concomitant]
     Active Substance: ATOSIBAN
     Route: 064
     Dates: start: 20210502, end: 20210503
  6. EFEROX [Concomitant]
     Active Substance: LEVOTHYROXINE SODIUM
     Route: 064
     Dates: start: 20200918, end: 20210509

REACTIONS (9)
  - Talipes [Unknown]
  - Limb reduction defect [Unknown]
  - Tracheo-oesophageal fistula [Unknown]
  - Patent ductus arteriosus [Recovered/Resolved]
  - Atrial septal defect [Unknown]
  - Limb malformation [Unknown]
  - Oesophageal atresia [Unknown]
  - Congenital knee deformity [Unknown]
  - Foetal exposure during pregnancy [Unknown]

NARRATIVE: CASE EVENT DATE: 20210509
